FAERS Safety Report 6129055-3 (Version None)
Quarter: 2009Q1

REPORT INFORMATION
  Report Type: 
  Country: None (occurrence: None)
  Receive Date: 20090324
  Receipt Date: 20090312
  Transmission Date: 20090719
  Serious: Yes (Hospitalization, Other)
  Sender: FDA-Public Use
  Company Number: US-JNJFOC-20090303694

PATIENT
  Sex: Female

DRUGS (20)
  1. TOPAMAX [Suspect]
     Route: 048
  2. TOPAMAX [Suspect]
     Indication: MIGRAINE PROPHYLAXIS
     Route: 048
  3. FLUTICASONE PROPIONATE [Concomitant]
  4. BUSPIRONE HCL [Concomitant]
  5. EPITOL [Concomitant]
  6. FLUOXETINE [Concomitant]
  7. NASACORT [Concomitant]
  8. LEVOTHYROXINE SODIUM [Concomitant]
  9. FLUOXETINE [Concomitant]
  10. AMITRIPTYLINE [Concomitant]
  11. AMITRIPTYLINE [Concomitant]
  12. FROVA [Concomitant]
  13. MAGNESIUM OXIDE [Concomitant]
  14. NABUMETONE [Concomitant]
  15. NEXIUM [Concomitant]
  16. SINGULAIR [Concomitant]
  17. VITAMIN D [Concomitant]
  18. PREDNISONE [Concomitant]
  19. IBUPROPHEN [Concomitant]
  20. HYDROCO/APAPS [Concomitant]

REACTIONS (8)
  - AMNESIA [None]
  - ANXIETY [None]
  - CARDIAC DISORDER [None]
  - CARDIOVASCULAR DISORDER [None]
  - COGNITIVE DISORDER [None]
  - DYSPNOEA [None]
  - IMPAIRED DRIVING ABILITY [None]
  - TREMOR [None]
